FAERS Safety Report 18646502 (Version 2)
Quarter: 2021Q1

REPORT INFORMATION
  Report Type: Other
  Country: US (occurrence: US)
  Receive Date: 20201221
  Receipt Date: 20210320
  Transmission Date: 20210419
  Serious: No
  Sender: FDA-Public Use
  Company Number: US-ACORDA-ACO_166520_2020

PATIENT
  Sex: Male

DRUGS (3)
  1. INBRIJA [Suspect]
     Active Substance: LEVODOPA
     Indication: PARKINSON^S DISEASE
     Dosage: 84 MILLIGRAM, AS NEEDED (NOT TO EXCEED 5 DOSES PER DAY)
  2. INBRIJA [Suspect]
     Active Substance: LEVODOPA
     Indication: ON AND OFF PHENOMENON
     Dosage: 42 MILLIGRAM
  3. INBRIJA [Suspect]
     Active Substance: LEVODOPA
     Dosage: 84 MILLIGRAM, AS NEEDED (NOT TO EXCEED 5 DOSES PER DAY)

REACTIONS (7)
  - Therapeutic product effect variable [Unknown]
  - Product cleaning inadequate [Unknown]
  - Speech disorder [Unknown]
  - Oropharyngeal discomfort [Unknown]
  - Product residue present [Unknown]
  - Cough [Not Recovered/Not Resolved]
  - Device occlusion [Unknown]
